FAERS Safety Report 7532429-7 (Version None)
Quarter: 2011Q2

REPORT INFORMATION
  Report Type: 
  Country: None (occurrence: None)
  Receive Date: 20110608
  Receipt Date: 20110603
  Transmission Date: 20111010
  Serious: Yes (Hospitalization, Other)
  Sender: FDA-Public Use
  Company Number: US-PFIZER INC-2010006396

PATIENT
  Sex: Male

DRUGS (1)
  1. CHANTIX [Suspect]
     Indication: SMOKING CESSATION THERAPY
     Dosage: UNK
     Dates: start: 20060101, end: 20060820

REACTIONS (5)
  - SUICIDE ATTEMPT [None]
  - LACERATION [None]
  - CONCUSSION [None]
  - WRIST FRACTURE [None]
  - RIB FRACTURE [None]
